FAERS Safety Report 12104042 (Version 1)
Quarter: 2016Q1

REPORT INFORMATION
  Report Type: Other
  Country: US (occurrence: US)
  Receive Date: 20160223
  Receipt Date: 20160223
  Transmission Date: 20160526
  Serious: Yes (Other)
  Sender: FDA-Public Use
  Company Number: US-SHIRE-US201601832

PATIENT
  Age: 35 Year
  Sex: Female

DRUGS (2)
  1. CINRYZE [Suspect]
     Active Substance: HUMAN C1-ESTERASE INHIBITOR
     Indication: PROPHYLAXIS
  2. CINRYZE [Suspect]
     Active Substance: HUMAN C1-ESTERASE INHIBITOR
     Indication: HEREDITARY ANGIOEDEMA
     Dosage: 1500 UNITS, OTHER(EVERY 3 OR 4 DAYS)
     Route: 042
     Dates: start: 201305

REACTIONS (6)
  - Prescribed overdose [Not Recovered/Not Resolved]
  - Pharyngeal oedema [Unknown]
  - Oedema peripheral [Unknown]
  - Swelling [Unknown]
  - Gait disturbance [Unknown]
  - Heart rate increased [Unknown]

NARRATIVE: CASE EVENT DATE: 201305
